FAERS Safety Report 25340010 (Version 4)
Quarter: 2025Q3

REPORT INFORMATION
  Report Type: Report from Study
  Country: US (occurrence: US)
  Receive Date: 20250521
  Receipt Date: 20250803
  Transmission Date: 20251020
  Serious: Yes (Hospitalization, Other)
  Sender: ALEXION PHARMACEUTICALS
  Company Number: US-AstraZeneca-CH-00870338A

PATIENT
  Age: 42 Year
  Sex: Female
  Weight: 57.143 kg

DRUGS (8)
  1. STRENSIQ [Suspect]
     Active Substance: ASFOTASE ALFA
     Indication: Hypophosphatasia
     Dosage: 80 MILLIGRAM, TIW
     Dates: start: 20230330
  2. GABAPENTIN [Concomitant]
     Active Substance: GABAPENTIN
     Route: 065
  3. ROPINIROLE [Concomitant]
     Active Substance: ROPINIROLE
     Route: 065
  4. IRON [Concomitant]
     Active Substance: IRON
     Route: 065
  5. VITAMIN D3 [Concomitant]
     Active Substance: CHOLECALCIFEROL
     Route: 065
  6. IVABRADINE [Concomitant]
     Active Substance: IVABRADINE
     Route: 065
  7. TRAZODONE [Concomitant]
     Active Substance: TRAZODONE HYDROCHLORIDE
     Route: 065
  8. CELEBREX [Concomitant]
     Active Substance: CELECOXIB
     Route: 065

REACTIONS (7)
  - Migraine [Not Recovered/Not Resolved]
  - Hemiplegia [Not Recovered/Not Resolved]
  - Chondropathy [Unknown]
  - Arthropathy [Not Recovered/Not Resolved]
  - Mobility decreased [Unknown]
  - Fatigue [Unknown]
  - Cartilage injury [Unknown]

NARRATIVE: CASE EVENT DATE: 20250301
